FAERS Safety Report 8504707-6 (Version None)
Quarter: 2012Q3

REPORT INFORMATION
  Report Type: 
  Country: None (occurrence: None)
  Receive Date: 20120711
  Receipt Date: 20120707
  Transmission Date: 20120928
  Serious: Yes (Other)
  Sender: FDA-Public Use
  Company Number: BR-ROCHE-1085617

PATIENT

DRUGS (1)
  1. MABTHERA [Suspect]
     Indication: SJOGREN'S SYNDROME

REACTIONS (1)
  - BREAST CANCER [None]
